FAERS Safety Report 8127050-6 (Version None)
Quarter: 2012Q1

REPORT INFORMATION
  Report Type: 
  Country: None (occurrence: None)
  Receive Date: 20120210
  Receipt Date: 20120202
  Transmission Date: 20120608
  Serious: Yes (Hospitalization)
  Sender: FDA-Public Use
  Company Number: US-BAYER-2010-004386

PATIENT
  Age: 22 Year
  Sex: Female
  Weight: 68.934 kg

DRUGS (8)
  1. YAZ [Suspect]
  2. YAZ [Suspect]
     Indication: PREMENSTRUAL SYNDROME
  3. YASMIN [Suspect]
     Indication: CONTRACEPTION
     Dosage: UNK
     Route: 048
     Dates: start: 20030401, end: 20070601
  4. YAZ [Suspect]
     Indication: ACNE
     Dosage: UNK
     Dates: start: 20080601, end: 20091101
  5. YAZ [Suspect]
     Indication: CONTRACEPTION
     Dosage: UNK
     Route: 048
     Dates: start: 20070601, end: 20071001
  6. YASMIN [Suspect]
     Indication: PREMENSTRUAL SYNDROME
  7. YASMIN [Suspect]
     Indication: ACNE
  8. YASMIN [Suspect]

REACTIONS (4)
  - APPENDICECTOMY [None]
  - CHOLECYSTITIS CHRONIC [None]
  - GALLBLADDER INJURY [None]
  - PAIN [None]
